FAERS Safety Report 5242245-7 (Version None)
Quarter: 2007Q1

REPORT INFORMATION
  Report Type: 
  Country: None (occurrence: None)
  Receive Date: 20070215
  Receipt Date: 20070215
  Transmission Date: 20070707
  Serious: Yes (Other)
  Sender: FDA-Public Use
  Company Number: None

PATIENT
  Age: 80 Year
  Sex: Male
  Weight: 47 kg

DRUGS (5)
  1. DULOXETINE [Suspect]
     Indication: DEPRESSION
     Dosage: 60 MG QAM
     Dates: start: 20061228
  2. TYLENOL [Concomitant]
  3. HALDOL PM [Concomitant]
  4. HYDROCHLOROTHIAZIDE [Concomitant]
  5. MIRTAZAPINE [Concomitant]

REACTIONS (1)
  - FAECAL INCONTINENCE [None]
